FAERS Safety Report 18738896 (Version 9)
Quarter: 2022Q2

REPORT INFORMATION
  Report Type: Report from Study
  Country: FR (occurrence: FR)
  Receive Date: 20210114
  Receipt Date: 20220530
  Transmission Date: 20220720
  Serious: Yes (Life-Threatening, Hospitalization, Other)
  Sender: FDA-Public Use
  Company Number: FR-ABBVIE-21K-056-3729449-00

PATIENT
  Age: 62 Year
  Sex: Female
  Weight: 75 kg

DRUGS (14)
  1. SKYRIZI [Suspect]
     Active Substance: RISANKIZUMAB-RZAA
     Indication: Psoriasis
     Dosage: TWICE:1 PER MONTH, THEN 12 WEEKS LATER
     Route: 058
     Dates: start: 20201119, end: 20201217
  2. SKYRIZI [Suspect]
     Active Substance: RISANKIZUMAB-RZAA
     Dosage: TWICE:1 PER MONTH, THEN 12 WEEKS LATER
     Route: 058
     Dates: start: 20201217, end: 20201217
  3. SKYRIZI [Suspect]
     Active Substance: RISANKIZUMAB-RZAA
     Dosage: TWICE:1 PER MONTH, THEN 12 WEEKS LATER
     Route: 058
     Dates: start: 20210430
  4. ENSTILAR [Concomitant]
     Active Substance: BETAMETHASONE DIPROPIONATE\CALCIPOTRIENE HYDRATE
     Indication: Eczema
     Dosage: ONCE A DAY DURING 1 MONTH, TWICE A WEEK
     Route: 061
     Dates: start: 20211022
  5. ENSTILAR [Concomitant]
     Active Substance: BETAMETHASONE DIPROPIONATE\CALCIPOTRIENE HYDRATE
     Indication: Product used for unknown indication
     Dates: start: 20211022
  6. HYDROCHLOROTHIAZIDE\IRBESARTAN [Concomitant]
     Active Substance: HYDROCHLOROTHIAZIDE\IRBESARTAN
     Indication: Type 2 diabetes mellitus
     Dosage: 150/12.5 MG
     Route: 048
  7. HYDROCHLOROTHIAZIDE\IRBESARTAN [Concomitant]
     Active Substance: HYDROCHLOROTHIAZIDE\IRBESARTAN
     Dosage: 300/12.5 MG IN THE MORNING
  8. HYDROCHLOROTHIAZIDE\IRBESARTAN [Concomitant]
     Active Substance: HYDROCHLOROTHIAZIDE\IRBESARTAN
     Dates: start: 2021
  9. ESOMEPRAZOLE [Concomitant]
     Active Substance: ESOMEPRAZOLE
     Indication: Gastrooesophageal reflux disease
     Route: 048
  10. GLICLAZIDE LM [Concomitant]
     Indication: Product used for unknown indication
     Dates: start: 2021
  11. INSULIN GLARGINE [Concomitant]
     Active Substance: INSULIN GLARGINE
     Indication: Product used for unknown indication
  12. SEMAGLUTIDE [Concomitant]
     Active Substance: SEMAGLUTIDE
     Indication: Product used for unknown indication
     Dosage: ONCE A WEEK: EVERY MONDAY MORNING
     Dates: start: 2021
  13. CYMBALTA [Concomitant]
     Active Substance: DULOXETINE HYDROCHLORIDE
     Indication: Diabetic neuropathy
  14. LEVOTHYROXINE [Concomitant]
     Active Substance: LEVOTHYROXINE
     Indication: Product used for unknown indication

REACTIONS (9)
  - Chest pain [Recovered/Resolved]
  - Troponin increased [Recovered/Resolved]
  - Acute coronary syndrome [Recovered/Resolved]
  - Interstitial lung disease [Unknown]
  - Myopericarditis [Unknown]
  - Pleural effusion [Recovered/Resolved]
  - Scar pain [Unknown]
  - Arthralgia [Unknown]
  - Abdominal distension [Unknown]

NARRATIVE: CASE EVENT DATE: 20210101
